FAERS Safety Report 19544753 (Version 2)
Quarter: 2023Q2

REPORT INFORMATION
  Report Type: Spontaneous
  Country: US (occurrence: US)
  Receive Date: 20210713
  Receipt Date: 20230612
  Transmission Date: 20230722
  Serious: Yes (Hospitalization, Other)
  Sender: FDA-Public Use
  Company Number: US-PFIZER INC-2020512313

PATIENT
  Age: 75 Year
  Sex: Female

DRUGS (3)
  1. XELJANZ [Suspect]
     Active Substance: TOFACITINIB CITRATE
     Dosage: 5 MG, 1X/DAY
  2. XELJANZ [Suspect]
     Active Substance: TOFACITINIB CITRATE
     Dosage: 5 MG, ALTERNATE DAY
  3. GINGER AND TURMERIC [Concomitant]
     Dosage: UNK

REACTIONS (7)
  - Chronic kidney disease [Unknown]
  - Hypertension [Unknown]
  - Fall [Unknown]
  - Pelvic fracture [Unknown]
  - Nerve injury [Not Recovered/Not Resolved]
  - Herpes zoster [Unknown]
  - Intentional product misuse [Unknown]

NARRATIVE: CASE EVENT DATE: 20220101
